FAERS Safety Report 10042813 (Version 1)
Quarter: 2014Q1

REPORT INFORMATION
  Report Type: Spontaneous
  Country: IN (occurrence: IN)
  Receive Date: 20140327
  Receipt Date: 20140327
  Transmission Date: 20141002
  Serious: Yes (Other)
  Sender: FDA-Public Use
  Company Number: PHHY2014IN034287

PATIENT
  Age: 52 Year
  Sex: Male

DRUGS (1)
  1. CEFTRIAXONE [Suspect]
     Indication: PROPHYLAXIS
     Dosage: 1 G, UNK
     Route: 065

REACTIONS (8)
  - Disseminated intravascular coagulation [Recovered/Resolved]
  - Jaundice [Recovered/Resolved]
  - Swelling face [Recovered/Resolved]
  - Haemolytic anaemia [Recovered/Resolved]
  - Hepatic function abnormal [Recovered/Resolved]
  - Haematuria [Recovered/Resolved]
  - Epistaxis [Recovered/Resolved]
  - Arteriovenous fistula site haemorrhage [Recovered/Resolved]
